FAERS Safety Report 4979047-2 (Version None)
Quarter: 2006Q2

REPORT INFORMATION
  Report Type: 
  Country: None (occurrence: None)
  Receive Date: 20060419
  Receipt Date: 20060419
  Transmission Date: 20061013
  Serious: Yes (Hospitalization)
  Sender: FDA-Public Use
  Company Number: None

PATIENT
  Age: 57 Year
  Sex: Male
  Weight: 101 kg

DRUGS (13)
  1. WARFARIN SODIUM [Suspect]
     Indication: DEEP VEIN THROMBOSIS
     Dosage: SEE IMAGE
     Route: 048
     Dates: start: 19980101
  2. WARFARIN SODIUM [Suspect]
     Indication: FACTOR V DEFICIENCY
     Dosage: SEE IMAGE
     Route: 048
     Dates: start: 19980101
  3. WARFARIN SODIUM [Suspect]
     Indication: PULMONARY EMBOLISM
     Dosage: SEE IMAGE
     Route: 048
     Dates: start: 19980101
  4. LOVASTATIN [Concomitant]
  5. FLUOXETINE [Concomitant]
  6. FLUTICOSONE [Concomitant]
  7. FOLIC ACID [Concomitant]
  8. FUROSEMIDE [Concomitant]
  9. LISINOPRIL [Concomitant]
  10. METOLAZONE [Concomitant]
  11. OLANZAPINE [Concomitant]
  12. PROPOXYPHENE [Concomitant]
  13. FLOLEN [Concomitant]

REACTIONS (5)
  - GASTRIC ULCER [None]
  - HAEMATEMESIS [None]
  - INTERNATIONAL NORMALISED RATIO DECREASED [None]
  - LOSS OF CONSCIOUSNESS [None]
  - RECTAL HAEMORRHAGE [None]
